FAERS Safety Report 24344694 (Version 1)
Quarter: 2024Q3

REPORT INFORMATION
  Report Type: Other
  Country: US (occurrence: US)
  Receive Date: 20240920
  Receipt Date: 20240920
  Transmission Date: 20241016
  Serious: No
  Sender: Alora Pharma
  Company Number: US-ACELLA PHARMACEUTICALS, LLC-2024ALO00110

PATIENT
  Sex: Male
  Weight: 68.027 kg

DRUGS (2)
  1. METHYLPHENIDATE HYDROCHLORIDE [Suspect]
     Active Substance: METHYLPHENIDATE HYDROCHLORIDE
     Indication: Attention deficit hyperactivity disorder
     Dosage: 54 MG, 1X/DAY
     Route: 048
     Dates: start: 2023
  2. UNSPECIFIED INGREDIENT [Concomitant]
     Active Substance: UNSPECIFIED INGREDIENT

REACTIONS (4)
  - Disturbance in attention [Recovered/Resolved]
  - Drug ineffective [Recovered/Resolved]
  - Lethargy [Recovered/Resolved]
  - Product substitution issue [Recovered/Resolved]
